FAERS Safety Report 13784465 (Version 3)
Quarter: 2019Q1

REPORT INFORMATION
  Report Type: Spontaneous
  Country: US (occurrence: US)
  Receive Date: 20170724
  Receipt Date: 20190303
  Transmission Date: 20190417
  Serious: No
  Sender: FDA-Public Use
  Company Number: US-IMPAX LABORATORIES, INC-2017-IPXL-01083

PATIENT
  Age: 71 Year
  Sex: Male
  Weight: 104 kg

DRUGS (5)
  1. RYTARY [Suspect]
     Active Substance: CARBIDOPA\LEVODOPA
     Dosage: 23.75/95 MG THREE CAPSULES, QID TO ONE ADDITIONAL PILL
     Route: 048
  2. RYTARY [Suspect]
     Active Substance: CARBIDOPA\LEVODOPA
     Indication: PARKINSON^S DISEASE
     Dosage: 23.75/95 MG TWO CAPSULES, 4/DAY
     Route: 048
     Dates: start: 2016
  3. SUPER ASPIRIN [Concomitant]
     Indication: TRANSIENT ISCHAEMIC ATTACK
     Dosage: 200 MG, UNK
     Route: 065
  4. RYTARY [Suspect]
     Active Substance: CARBIDOPA\LEVODOPA
     Dosage: 23.75/95 MG THREE CAPSULES, 4/DAY
     Route: 048
  5. RYTARY [Suspect]
     Active Substance: CARBIDOPA\LEVODOPA
     Dosage: 23.75/95 MG FOUR CAPSULES, 4/DAY
     Route: 048

REACTIONS (3)
  - Tremor [Recovering/Resolving]
  - Extra dose administered [Unknown]
  - Labelled drug-food interaction medication error [Unknown]
